FAERS Safety Report 11319588 (Version 1)
Quarter: 2015Q3

REPORT INFORMATION
  Report Type: Spontaneous
  Country: US (occurrence: US)
  Receive Date: 20150729
  Receipt Date: 20150729
  Transmission Date: 20151125
  Serious: No
  Sender: FDA-Public Use
  Company Number: US-ASTRAZENECA-2015SE70559

PATIENT
  Age: 95 Year
  Sex: Male

DRUGS (5)
  1. QUETIAPINE [Suspect]
     Active Substance: QUETIAPINE
     Indication: SEXUALLY INAPPROPRIATE BEHAVIOUR
     Route: 048
     Dates: start: 201501, end: 201507
  2. QUETIAPINE [Suspect]
     Active Substance: QUETIAPINE
     Indication: SEXUALLY INAPPROPRIATE BEHAVIOUR
     Route: 048
     Dates: start: 201505, end: 201507
  3. QUETIAPINE [Suspect]
     Active Substance: QUETIAPINE
     Indication: SEXUALLY INAPPROPRIATE BEHAVIOUR
     Route: 048
     Dates: start: 201507, end: 201507
  4. AMBIEN [Concomitant]
     Active Substance: ZOLPIDEM TARTRATE
     Indication: INSOMNIA
     Route: 048
  5. QUETIAPINE [Suspect]
     Active Substance: QUETIAPINE
     Indication: SEXUALLY INAPPROPRIATE BEHAVIOUR
     Route: 048
     Dates: start: 201507

REACTIONS (4)
  - Product use issue [Unknown]
  - Off label use [Unknown]
  - Aggression [Unknown]
  - Food craving [Unknown]

NARRATIVE: CASE EVENT DATE: 201501
